FAERS Safety Report 5870650-4 (Version None)
Quarter: 2008Q3

REPORT INFORMATION
  Report Type: 
  Country: None (occurrence: None)
  Receive Date: 20080904
  Receipt Date: 20080826
  Transmission Date: 20090109
  Serious: Yes (Other)
  Sender: FDA-Public Use
  Company Number: PHHY2008FR13646

PATIENT
  Sex: Female

DRUGS (5)
  1. LIORESAL [Suspect]
     Indication: HEMIPLEGIA
     Dosage: 40 MG/ DAY
     Route: 048
     Dates: start: 20070901, end: 20080612
  2. LIORESAL [Suspect]
     Indication: MUSCLE SPASTICITY
  3. NEURONTIN [Concomitant]
     Indication: PAIN
     Dosage: UNK
     Dates: start: 20070901, end: 20080201
  4. DAFALGAN [Concomitant]
     Indication: PAIN
     Dosage: 1 TO 4 DAILY
  5. IXPRIM [Concomitant]
     Indication: PAIN
     Dosage: 1 TO 4 DAILY

REACTIONS (8)
  - ALANINE AMINOTRANSFERASE INCREASED [None]
  - ANOREXIA [None]
  - ASPARTATE AMINOTRANSFERASE INCREASED [None]
  - ASTHENIA [None]
  - BLOOD BILIRUBIN INCREASED [None]
  - FATIGUE [None]
  - GAMMA-GLUTAMYLTRANSFERASE INCREASED [None]
  - HEPATITIS [None]
